FAERS Safety Report 7884551-3 (Version None)
Quarter: 2011Q4

REPORT INFORMATION
  Report Type: 
  Country: None (occurrence: None)
  Receive Date: 20111102
  Receipt Date: 20111028
  Transmission Date: 20120403
  Serious: Yes (Death, Other)
  Sender: FDA-Public Use
  Company Number: US-PFIZER INC-2011265459

PATIENT
  Sex: Female

DRUGS (1)
  1. RAPAMUNE [Suspect]
     Dosage: 2 MG, 1X/DAY
     Dates: start: 20110803

REACTIONS (2)
  - NEOPLASM MALIGNANT [None]
  - DISEASE PROGRESSION [None]
